FAERS Safety Report 11983530 (Version 3)
Quarter: 2016Q1

REPORT INFORMATION
  Report Type: Spontaneous
  Country: US (occurrence: US)
  Receive Date: 20160201
  Receipt Date: 20160311
  Transmission Date: 20160526
  Serious: No
  Sender: FDA-Public Use
  Company Number: US-PFIZER INC-2016035183

PATIENT
  Age: 69 Year
  Sex: Female
  Weight: 73 kg

DRUGS (8)
  1. LATANOPROST. [Suspect]
     Active Substance: LATANOPROST
     Dosage: 2 GTT, 1X/DAY (1 DROP EACH EYE NIGHTLY @ 8: PM)
     Dates: start: 20151211
  2. SYNTHROID [Concomitant]
     Active Substance: LEVOTHYROXINE SODIUM
     Indication: THYROID DISORDER
     Dosage: UNK
     Dates: start: 2007
  3. LATANOPROST. [Suspect]
     Active Substance: LATANOPROST
     Dosage: 2 GTT, 1X/DAY (1 DROP EACH EYE NIGHTLY @ 8: PM)
     Dates: start: 20160105
  4. CLOPIDOGREL [Concomitant]
     Active Substance: CLOPIDOGREL BISULFATE
     Indication: THROMBOSIS
     Dosage: UNK, ALTERNATE DAY
     Dates: start: 2014
  5. LATANOPROST. [Suspect]
     Active Substance: LATANOPROST
     Indication: GLAUCOMA
     Dosage: 2.5 MG, 1X/DAY
     Route: 047
  6. METOPROLOL-ER [Concomitant]
     Indication: BLOOD PRESSURE MEASUREMENT
     Dosage: UNK
     Dates: start: 2014
  7. LATANOPROST. [Suspect]
     Active Substance: LATANOPROST
     Dosage: UNK
  8. LATANOPROST. [Suspect]
     Active Substance: LATANOPROST
     Dosage: 2 GTT, 1X/DAY (1 DROP EACH EYE NIGHTLY @ 8: PM)
     Dates: start: 2006

REACTIONS (4)
  - Oral discomfort [Not Recovered/Not Resolved]
  - Accidental exposure to product [Recovered/Resolved]
  - Throat irritation [Not Recovered/Not Resolved]
  - Product formulation issue [Not Recovered/Not Resolved]

NARRATIVE: CASE EVENT DATE: 201512
